FAERS Safety Report 8774318 (Version 5)
Quarter: 2012Q4

REPORT INFORMATION
  Report Type: 
  Country: US (occurrence: US)
  Receive Date: 20120907
  Receipt Date: 20121206
  Transmission Date: 20130627
  Serious: Yes (Other)
  Sender: FDA-Public Use
  Company Number: US-PFIZER INC-2012220505

PATIENT
  Age: 62 Year
  Sex: Female
  Weight: 101.6 kg

DRUGS (6)
  1. CELEBREX [Suspect]
     Indication: ARTHRITIS
     Dosage: 200 mg, 1x/day
     Route: 048
  2. WELLBUTRIN [Concomitant]
     Dosage: 150 mg, 2x/day
  3. CLONAZEPAM [Concomitant]
     Dosage: 1 mg, 3x/day
  4. HYDROCHLOROTHIAZIDE [Concomitant]
     Dosage: 25 mg, UNK
  5. IMITREX [Concomitant]
     Dosage: 100 mg, as needed
  6. LOVASTATIN [Concomitant]
     Dosage: 20 mg, 1x/day

REACTIONS (3)
  - Bipolar disorder [Not Recovered/Not Resolved]
  - Post-traumatic stress disorder [Not Recovered/Not Resolved]
  - Polymyalgia rheumatica [Unknown]
